FAERS Safety Report 19273481 (Version 1)
Quarter: 2021Q2

REPORT INFORMATION
  Report Type: Report from Study
  Country: IE (occurrence: IE)
  Receive Date: 20210519
  Receipt Date: 20210519
  Transmission Date: 20210717
  Serious: Yes (Hospitalization)
  Sender: FDA-Public Use
  Company Number: IE-BIOGEN-2021BI00972943

PATIENT
  Age: 49 Year
  Sex: Male

DRUGS (2)
  1. TECFIDERA [Suspect]
     Active Substance: DIMETHYL FUMARATE
     Indication: RELAPSING-REMITTING MULTIPLE SCLEROSIS
     Route: 048
     Dates: start: 20201112
  2. VENTOLIN [Suspect]
     Active Substance: ALBUTEROL SULFATE
     Indication: LOWER RESPIRATORY TRACT INFECTION
     Route: 065

REACTIONS (8)
  - Vomiting [Not Recovered/Not Resolved]
  - Weight increased [Not Recovered/Not Resolved]
  - Emotional disorder [Recovered/Resolved]
  - Rash [Recovered/Resolved]
  - Pancreatitis acute [Not Recovered/Not Resolved]
  - Paraesthesia [Recovered/Resolved]
  - Lower respiratory tract infection [Recovered/Resolved]
  - Chest pain [Not Recovered/Not Resolved]

NARRATIVE: CASE EVENT DATE: 202101
